FAERS Safety Report 4412223-6 (Version None)
Quarter: 2004Q3

REPORT INFORMATION
  Report Type: 
  Country: None (occurrence: None)
  Receive Date: 20040727
  Receipt Date: 20040712
  Transmission Date: 20050211
  Serious: Yes (Death, Hospitalization)
  Sender: FDA-Public Use
  Company Number: 168360

PATIENT
  Age: 64 Year
  Sex: Male
  Weight: 92.9874 kg

DRUGS (1)
  1. AVONEX [Suspect]
     Indication: MULTIPLE SCLEROSIS
     Dosage: 30 MCG QW IM
     Route: 030
     Dates: start: 19970101, end: 20020101

REACTIONS (15)
  - ATRIAL FLUTTER [None]
  - CARDIAC DISORDER [None]
  - CHEST X-RAY ABNORMAL [None]
  - COLOSTOMY INFECTION [None]
  - CRYOGLOBULINAEMIA [None]
  - DISEASE RECURRENCE [None]
  - DYSPNOEA [None]
  - EMPHYSEMA [None]
  - FAECAL INCONTINENCE [None]
  - PERSONALITY DISORDER [None]
  - POSTOPERATIVE INFECTION [None]
  - SEPSIS [None]
  - THROMBOSIS [None]
  - VOLVULUS OF BOWEL [None]
  - WEIGHT DECREASED [None]
